FAERS Safety Report 8593842-2 (Version None)
Quarter: 2012Q3

REPORT INFORMATION
  Report Type: 
  Country: None (occurrence: None)
  Receive Date: 20120814
  Receipt Date: 20120807
  Transmission Date: 20120928
  Serious: Yes (Other)
  Sender: FDA-Public Use
  Company Number: PHHY2012MX069763

PATIENT
  Sex: Female

DRUGS (5)
  1. TAFIROL [Concomitant]
  2. DIOVAN HCT [Suspect]
     Indication: HYPERTENSION
     Dosage: 80 MG / 12.5 MG
     Route: 048
     Dates: start: 20090901
  3. EXPECTRASEF [Concomitant]
  4. PLAVIX [Concomitant]
  5. GLIMETAL [Concomitant]

REACTIONS (6)
  - ARTERIAL OCCLUSIVE DISEASE [None]
  - KIDNEY INFECTION [None]
  - MUSCULOSKELETAL PAIN [None]
  - EPIGASTRIC DISCOMFORT [None]
  - BLOOD GLUCOSE INCREASED [None]
  - PAIN IN EXTREMITY [None]
